FAERS Safety Report 21262596 (Version 1)
Quarter: 2022Q3

REPORT INFORMATION
  Report Type: Spontaneous
  Country: US (occurrence: US)
  Receive Date: 20220828
  Receipt Date: 20220828
  Transmission Date: 20221027
  Serious: Yes (Death, Other)
  Sender: FDA-Public Use
  Company Number: US-SA-SAC20220825000214

PATIENT
  Age: 63 Year
  Sex: Male

DRUGS (3)
  1. ZANTAC [Suspect]
     Active Substance: RANITIDINE HYDROCHLORIDE
     Dosage: 150 MG,QD
     Dates: start: 200801
  2. ZANTAC [Suspect]
     Active Substance: RANITIDINE HYDROCHLORIDE
     Dosage: 300MG,QD
  3. ZANTAC [Suspect]
     Active Substance: RANITIDINE HYDROCHLORIDE
     Dosage: 75MG,QD
     Dates: end: 201812

REACTIONS (3)
  - Hepatic cancer stage IV [Fatal]
  - Renal cancer stage IV [Fatal]
  - Lung neoplasm malignant [Fatal]

NARRATIVE: CASE EVENT DATE: 20190201
